FAERS Safety Report 13849274 (Version 1)
Quarter: 2017Q3

REPORT INFORMATION
  Report Type: Spontaneous
  Country: US (occurrence: US)
  Receive Date: 20170809
  Receipt Date: 20170809
  Transmission Date: 20171127
  Serious: Yes (Hospitalization)
  Sender: FDA-Public Use
  Company Number: None

PATIENT
  Age: 41 Year
  Sex: Female
  Weight: 57.7 kg

DRUGS (12)
  1. PREDNISONE. [Concomitant]
     Active Substance: PREDNISONE
  2. SULFAMETHOXAZOLE-TRIMETHOPRIM [Concomitant]
     Active Substance: SULFAMETHOXAZOLE\TRIMETHOPRIM
  3. LEVEMIR [Concomitant]
     Active Substance: INSULIN DETEMIR
  4. OMEPRAZOLE. [Concomitant]
     Active Substance: OMEPRAZOLE
  5. URSODIOL. [Concomitant]
     Active Substance: URSODIOL
  6. ASPIRIN. [Concomitant]
     Active Substance: ASPIRIN
  7. TACROLIMUS. [Suspect]
     Active Substance: TACROLIMUS
     Indication: LIVER TRANSPLANT
     Route: 048
  8. MAGNESIUM OXIDE. [Concomitant]
     Active Substance: MAGNESIUM OXIDE
  9. HUMALOG [Concomitant]
     Active Substance: INSULIN LISPRO
  10. LASIX [Concomitant]
     Active Substance: FUROSEMIDE
  11. CELLCEPT [Suspect]
     Active Substance: MYCOPHENOLATE MOFETIL\MYCOPHENOLATE MOFETIL HYDROCHLORIDE
     Indication: LIVER TRANSPLANT
     Route: 048
  12. POTASSIUM CHLORIDE. [Concomitant]
     Active Substance: POTASSIUM CHLORIDE

REACTIONS (1)
  - Ophthalmic herpes zoster [None]

NARRATIVE: CASE EVENT DATE: 20170420
